FAERS Safety Report 7326784-0 (Version None)
Quarter: 2011Q1

REPORT INFORMATION
  Report Type: 
  Country: None (occurrence: None)
  Receive Date: 20110302
  Receipt Date: 20100520
  Transmission Date: 20110831
  Serious: Yes (Other)
  Sender: FDA-Public Use
  Company Number: US-PFIZER INC-2010034366

PATIENT
  Sex: Male
  Weight: 91 kg

DRUGS (2)
  1. DILANTIN [Suspect]
     Dosage: 50 MG, UNK
  2. DILANTIN [Suspect]
     Dosage: 50MG ONCE DAILY IN THE MORNING, 40MG ONCE DAILY AT NIGHT
     Dates: start: 20071224

REACTIONS (1)
  - STEVENS-JOHNSON SYNDROME [None]
